FAERS Safety Report 8624381-8 (Version None)
Quarter: 2012Q3

REPORT INFORMATION
  Report Type: 
  Country: None (occurrence: None)
  Receive Date: 20120827
  Receipt Date: 20120820
  Transmission Date: 20120928
  Serious: Yes (Other)
  Sender: FDA-Public Use
  Company Number: US-PFIZER INC-2012204854

PATIENT
  Age: 65 Year
  Sex: Female
  Weight: 72.6 kg

DRUGS (3)
  1. NEURONTIN [Suspect]
     Dosage: UNK
  2. LYRICA [Suspect]
     Indication: NEURALGIA
     Dosage: 100 MG, 3X/DAY
     Dates: start: 20080104
  3. ZEGERID [Suspect]
     Indication: ABDOMINAL PAIN UPPER
     Dosage: UNK

REACTIONS (12)
  - WITHDRAWAL SYNDROME [None]
  - HYPOAESTHESIA [None]
  - GASTROINTESTINAL PAIN [None]
  - MUSCLE SPASMS [None]
  - NEURALGIA [None]
  - DRUG INEFFECTIVE [None]
  - ABDOMINAL PAIN UPPER [None]
  - VOMITING [None]
  - ROAD TRAFFIC ACCIDENT [None]
  - HYPERTENSION [None]
  - HEADACHE [None]
  - MALAISE [None]
